FAERS Safety Report 8978512 (Version 1)
Quarter: 2012Q4

REPORT INFORMATION
  Report Type: Report from Study
  Country: GB (occurrence: GB)
  Receive Date: 20121220
  Receipt Date: 20121220
  Transmission Date: 20130627
  Serious: Yes (Death)
  Sender: FDA-Public Use
  Company Number: GB-BAXTER-2012BAX027874

PATIENT
  Sex: Male

DRUGS (1)
  1. ADVATE 250 IU POWDER AND SOLVENT FOR SOLUTION FOR INJECTION [Suspect]
     Indication: HEMOPHILIA A

REACTIONS (5)
  - Renal failure acute [Fatal]
  - Renal failure chronic [Fatal]
  - Elderly [Fatal]
  - Factor VIII deficiency [Fatal]
  - Chronic hepatitis C [Fatal]
